FAERS Safety Report 23137102 (Version 9)
Quarter: 2024Q4

REPORT INFORMATION
  Report Type: Report from Study
  Country: CA (occurrence: CA)
  Receive Date: 20231102
  Receipt Date: 20241202
  Transmission Date: 20250115
  Serious: Yes (Hospitalization, Other)
  Sender: GLAXOSMITHKLINE
  Company Number: CA-GLAXOSMITHKLINE-CA2023AMR149046

PATIENT

DRUGS (2)
  1. EPOPROSTENOL SODIUM [Suspect]
     Active Substance: EPOPROSTENOL SODIUM
     Indication: Pulmonary arterial hypertension
     Dosage: 30000 NG
     Route: 042
     Dates: start: 20091027
  2. EPOPROSTENOL SODIUM [Suspect]
     Active Substance: EPOPROSTENOL SODIUM
     Dosage: 30 UG, 3.1 ML PER HOUR
     Route: 042

REACTIONS (11)
  - Pyrexia [Unknown]
  - Dyspnoea [Not Recovered/Not Resolved]
  - Dysuria [Unknown]
  - Infection [Unknown]
  - Productive cough [Not Recovered/Not Resolved]
  - Sputum retention [Not Recovered/Not Resolved]
  - Pleural effusion [Unknown]
  - General physical health deterioration [Unknown]
  - Pain in extremity [Unknown]
  - Endodontic procedure [Recovering/Resolving]
  - Weight fluctuation [Unknown]

NARRATIVE: CASE EVENT DATE: 20240307
